FAERS Safety Report 7802234-2 (Version None)
Quarter: 2011Q4

REPORT INFORMATION
  Report Type: 
  Country: None (occurrence: None)
  Receive Date: 20111007
  Receipt Date: 20110930
  Transmission Date: 20120403
  Serious: Yes (Hospitalization, Other)
  Sender: FDA-Public Use
  Company Number: JP-CEPHALON-2011002365

PATIENT
  Sex: Female
  Weight: 65 kg

DRUGS (5)
  1. RITUXIMAB [Concomitant]
     Indication: NON-HODGKIN'S LYMPHOMA
     Dates: start: 20110214, end: 20110314
  2. BENDAMUSTINE HCL [Suspect]
     Indication: NON-HODGKIN'S LYMPHOMA
     Route: 042
     Dates: start: 20110215, end: 20110316
  3. FLUCONAZOLE [Concomitant]
     Dates: start: 20110215, end: 20110418
  4. VALACYCLOVIR HYDROCHLORIDE [Concomitant]
     Dates: start: 20110215, end: 20110418
  5. SULFAMETHOXAZOLE AND TRIMETHOPRIM [Concomitant]
     Dates: start: 20110215, end: 20110418

REACTIONS (7)
  - WHITE BLOOD CELL COUNT DECREASED [None]
  - FEBRILE NEUTROPENIA [None]
  - LYMPHOCYTE COUNT DECREASED [None]
  - PYREXIA [None]
  - NAUSEA [None]
  - CYTOMEGALOVIRUS INFECTION [None]
  - ORAL HERPES [None]
